FAERS Safety Report 6895325-4 (Version None)
Quarter: 2010Q3

REPORT INFORMATION
  Report Type: 
  Country: None (occurrence: None)
  Receive Date: 20100802
  Receipt Date: 20100721
  Transmission Date: 20110219
  Serious: Yes (Hospitalization)
  Sender: FDA-Public Use
  Company Number: JP-PFIZER INC-2010084187

PATIENT
  Age: 58 Year
  Sex: Male

DRUGS (8)
  1. SUNITINIB MALATE [Suspect]
     Indication: RENAL CELL CARCINOMA
     Dosage: 37.5 MG, 1X/DAY
     Route: 048
     Dates: start: 20091006, end: 20100617
  2. MAG-LAX [Concomitant]
     Dosage: UNK
     Route: 048
     Dates: start: 20091003
  3. ETODOLAC [Concomitant]
     Dosage: UNK
     Route: 048
     Dates: start: 20091003
  4. SELBEX [Concomitant]
     Dosage: UNK
     Route: 048
  5. MS CONTIN [Concomitant]
     Route: 048
  6. AMOBAN [Concomitant]
     Route: 048
  7. DEPAS [Concomitant]
     Route: 048
  8. ADALAT [Concomitant]
     Dosage: UNK
     Route: 048
     Dates: start: 20091011

REACTIONS (2)
  - PLATELET COUNT DECREASED [None]
  - PNEUMATOSIS INTESTINALIS [None]
